FAERS Safety Report 20231869 (Version 2)
Quarter: 2022Q1

REPORT INFORMATION
  Report Type: Report from Study
  Country: HU (occurrence: HU)
  Receive Date: 20211227
  Receipt Date: 20220105
  Transmission Date: 20220423
  Serious: Yes (Hospitalization)
  Sender: FDA-Public Use
  Company Number: HU-ABBVIE-21K-076-4212287-00

PATIENT
  Sex: Female

DRUGS (7)
  1. CARBIDOPA\LEVODOPA [Suspect]
     Active Substance: CARBIDOPA\LEVODOPA
     Indication: Parkinson^s disease
     Dosage: MORNING DOSE: 1.3 ML; CONTINUOUS DOSE: 1.3 ML/HOUR; EXTRA DOSE: 0.5 ML
     Route: 050
     Dates: start: 20161210
  2. CARBIDOPA\LEVODOPA [Suspect]
     Active Substance: CARBIDOPA\LEVODOPA
  3. CITAGEN [Concomitant]
     Indication: Depression
     Route: 048
  4. RALNEA [Concomitant]
     Indication: Product used for unknown indication
     Route: 048
  5. PANTOPRAZOLE SODIUM [Concomitant]
     Active Substance: PANTOPRAZOLE SODIUM
     Indication: Gastrointestinal disorder prophylaxis
     Route: 048
  6. NEBILE [Concomitant]
     Indication: Hypertension
     Route: 048
  7. BENFOTIAMINE [Concomitant]
     Active Substance: BENFOTIAMINE
     Indication: Product used for unknown indication
     Route: 048

REACTIONS (7)
  - Diverticulum intestinal [Unknown]
  - Haematochezia [Recovered/Resolved]
  - Duodenal ulcer haemorrhage [Unknown]
  - Gastrointestinal haemorrhage [Unknown]
  - Abdominal pain [Recovered/Resolved]
  - Gastrointestinal disorder [Recovered/Resolved]
  - Weight decreased [Unknown]

NARRATIVE: CASE EVENT DATE: 20170101
